FAERS Safety Report 6831585-3 (Version None)
Quarter: 2010Q3

REPORT INFORMATION
  Report Type: 
  Country: None (occurrence: None)
  Receive Date: 20100712
  Receipt Date: 20100630
  Transmission Date: 20110219
  Serious: Yes (Other)
  Sender: FDA-Public Use
  Company Number: PHHY2010AR31271

PATIENT
  Sex: Male

DRUGS (1)
  1. CLOZAPINE [Suspect]
     Indication: SCHIZOPHRENIA
     Dosage: 700 MG DAILY
     Dates: start: 20100414

REACTIONS (4)
  - EOSINOPHILIA [None]
  - HYPERSENSITIVITY [None]
  - INFLUENZA [None]
  - WHITE BLOOD CELL COUNT INCREASED [None]
